FAERS Safety Report 4829957-1 (Version None)
Quarter: 2005Q4

REPORT INFORMATION
  Report Type: 
  Country: None (occurrence: None)
  Receive Date: 20051115
  Receipt Date: 20051109
  Transmission Date: 20060501
  Serious: Yes (Other)
  Sender: FDA-Public Use
  Company Number: FR-2005-023732

PATIENT
  Sex: Female

DRUGS (1)
  1. BETAFERON (INTERFERON BETA - 12B) INJECTION, 250?G [Suspect]
     Indication: MULTIPLE SCLEROSIS
     Dosage: 8 MIU, 3X/ WEEK, SUBCUTANEOUS
     Route: 058

REACTIONS (1)
  - HAEMOLYTIC ANAEMIA [None]
